FAERS Safety Report 22348872 (Version 1)
Quarter: 2023Q2

REPORT INFORMATION
  Report Type: Spontaneous
  Country: US (occurrence: US)
  Receive Date: 20230522
  Receipt Date: 20230522
  Transmission Date: 20230721
  Serious: No
  Sender: FDA-Public Use
  Company Number: US-LEO Pharma-352141

PATIENT
  Sex: Female

DRUGS (1)
  1. ADBRY [Suspect]
     Active Substance: TRALOKINUMAB-LDRM
     Indication: Product used for unknown indication
     Dosage: STARTED - PARTIAL : ABOUT A WEEK AND A HALF AGO (FROM THE DATE OF THIS REPORT)
     Dates: start: 20230505

REACTIONS (1)
  - Urticaria [Unknown]
